FAERS Safety Report 6244214-7 (Version None)
Quarter: 2009Q2

REPORT INFORMATION
  Report Type: 
  Country: None (occurrence: None)
  Receive Date: 20090625
  Receipt Date: 20090618
  Transmission Date: 20091009
  Serious: Yes (Other)
  Sender: FDA-Public Use
  Company Number: US-BIOGENIDEC-2009BI014078

PATIENT
  Age: 53 Year
  Sex: Female

DRUGS (5)
  1. TYSABRI [Suspect]
     Indication: MULTIPLE SCLEROSIS
     Route: 042
     Dates: start: 20061031, end: 20090422
  2. LYRICA [Concomitant]
  3. ZOLOFT [Concomitant]
  4. AMBIEN [Concomitant]
     Route: 048
  5. ARICEPT [Concomitant]
     Route: 048

REACTIONS (5)
  - ABASIA [None]
  - BEDRIDDEN [None]
  - FALL [None]
  - PAIN [None]
  - PELVIC FRACTURE [None]
